FAERS Safety Report 10695827 (Version 2)
Quarter: 2015Q1

REPORT INFORMATION
  Report Type: Spontaneous
  Country: US (occurrence: US)
  Receive Date: 20150107
  Receipt Date: 20150206
  Transmission Date: 20150721
  Serious: Yes (Other)
  Sender: FDA-Public Use
  Company Number: US-RECKITT BENCKISER PHARMACEUTICAL, INC-RB-74649-2014

PATIENT
  Age: 26 Year
  Sex: Male

DRUGS (2)
  1. SUBOXONE [Suspect]
     Active Substance: BUPRENORPHINE HYDROCHLORIDE\NALOXONE HYDROCHLORIDE
     Indication: PAIN MANAGEMENT
     Dosage: TWO AND HALF MG, DAILY
     Route: 060
     Dates: start: 201310
  2. SUBOXONE [Suspect]
     Active Substance: BUPRENORPHINE HYDROCHLORIDE\NALOXONE HYDROCHLORIDE
     Indication: PAIN MANAGEMENT
     Dosage: UNK
     Route: 060
     Dates: end: 201405

REACTIONS (4)
  - Procedural pain [Not Recovered/Not Resolved]
  - Off label use [Recovered/Resolved]
  - Adverse event [Not Recovered/Not Resolved]
  - Spinal cord infection [Not Recovered/Not Resolved]

NARRATIVE: CASE EVENT DATE: 201310
